FAERS Safety Report 7366060-3 (Version None)
Quarter: 2011Q1

REPORT INFORMATION
  Report Type: 
  Country: None (occurrence: None)
  Receive Date: 20110322
  Receipt Date: 20110309
  Transmission Date: 20110831
  Serious: Yes (Hospitalization)
  Sender: FDA-Public Use
  Company Number: NL-MEDIMMUNE-MEDI-0012442

PATIENT
  Sex: Male
  Weight: 2.7 kg

DRUGS (2)
  1. SYNAGIS [Suspect]
     Route: 030
     Dates: start: 20110113, end: 20110113
  2. SYNAGIS [Suspect]

REACTIONS (14)
  - INFANTILE SPITTING UP [None]
  - MALAISE [None]
  - HYPOVENTILATION [None]
  - NASOPHARYNGITIS [None]
  - RESTLESSNESS [None]
  - APNOEA [None]
  - PHARYNGEAL OEDEMA [None]
  - PALLOR [None]
  - SKIN DISCOLOURATION [None]
  - DYSPNOEA [None]
  - RESPIRATORY SYNCYTIAL VIRUS INFECTION [None]
  - COUGH [None]
  - MALABSORPTION [None]
  - TRACHEAL STENOSIS [None]
